FAERS Safety Report 4864465-3 (Version None)
Quarter: 2005Q4

REPORT INFORMATION
  Report Type: 
  Country: None (occurrence: None)
  Receive Date: 20051222
  Receipt Date: 20051215
  Transmission Date: 20060501
  Serious: Yes (Other)
  Sender: FDA-Public Use
  Company Number: US-JNJFOC-20051204055

PATIENT
  Age: 18 Year
  Sex: Female
  Weight: 56.7 kg

DRUGS (1)
  1. ORTHO TRI-CYCLEN [Suspect]
     Indication: CONTRACEPTION
     Route: 048

REACTIONS (3)
  - ABORTION SPONTANEOUS [None]
  - DRUG EXPOSURE DURING PREGNANCY [None]
  - PREGNANCY ON ORAL CONTRACEPTIVE [None]
